FAERS Safety Report 6395771-1 (Version None)
Quarter: 2009Q4

REPORT INFORMATION
  Report Type: 
  Country: None (occurrence: None)
  Receive Date: 20091009
  Receipt Date: 20090813
  Transmission Date: 20100525
  Serious: Yes (Death, Hospitalization)
  Sender: FDA-Public Use
  Company Number: FR-TYCO HEALTHCARE/MALLINCKRODT-T200901492

PATIENT
  Age: 77 Year
  Sex: Male

DRUGS (4)
  1. OPTIRAY 350 [Suspect]
     Indication: THERAPEUTIC EMBOLISATION
     Dosage: UNK
     Route: 013
     Dates: start: 20090704, end: 20090704
  2. LIPIODOL                           /00259801/ [Suspect]
     Indication: THERAPEUTIC EMBOLISATION
     Dosage: 6.7 ML, SINGLE
     Route: 013
     Dates: start: 20090704, end: 20090704
  3. FARMORUBICIN                       /00699301/ [Suspect]
     Indication: THERAPEUTIC EMBOLISATION
     Dosage: UNK
     Route: 013
     Dates: start: 20090704, end: 20090704
  4. GELATIN [Suspect]
     Indication: THERAPEUTIC EMBOLISATION
     Dosage: UNK
     Route: 013
     Dates: start: 20090704, end: 20090704

REACTIONS (5)
  - DYSPNOEA [None]
  - INTERSTITIAL LUNG DISEASE [None]
  - OFF LABEL USE [None]
  - OXYGEN SATURATION DECREASED [None]
  - RESPIRATORY FAILURE [None]
